FAERS Safety Report 9496476 (Version 1)
Quarter: 2013Q3

REPORT INFORMATION
  Report Type: Spontaneous
  Country: CN (occurrence: CN)
  Receive Date: 20130904
  Receipt Date: 20130904
  Transmission Date: 20140515
  Serious: Yes (Hospitalization, Other)
  Sender: FDA-Public Use
  Company Number: PHHY2013CN094947

PATIENT
  Age: 23 Year
  Sex: Female

DRUGS (1)
  1. CARBAMAZEPINE [Suspect]
     Dosage: 100 MG, UNK
     Route: 048

REACTIONS (7)
  - Cystitis haemorrhagic [Recovered/Resolved]
  - Coma [Unknown]
  - Blood urine present [Recovered/Resolved]
  - Haemoglobinuria [Unknown]
  - Breath sounds abnormal [Unknown]
  - Toxicity to various agents [Unknown]
  - Hypersensitivity [Unknown]
